FAERS Safety Report 19130645 (Version 1)
Quarter: 2021Q2

REPORT INFORMATION
  Report Type: Spontaneous
  Country: US (occurrence: US)
  Receive Date: 20210413
  Receipt Date: 20210413
  Transmission Date: 20210717
  Serious: Yes (Hospitalization, Other)
  Sender: FDA-Public Use
  Company Number: US-PFIZER INC-2021363802

PATIENT

DRUGS (1)
  1. PREMARIN [Suspect]
     Active Substance: ESTROGENS, CONJUGATED
     Dosage: UNK

REACTIONS (9)
  - Hot flush [Unknown]
  - Pulmonary embolism [Unknown]
  - Product dose omission issue [Unknown]
  - Burning sensation [Unknown]
  - Thrombosis [Unknown]
  - Hypertension [Unknown]
  - Influenza [Unknown]
  - Skin burning sensation [Unknown]
  - Illness [Unknown]

NARRATIVE: CASE EVENT DATE: 2020
